FAERS Safety Report 4382597-3 (Version None)
Quarter: 2004Q2

REPORT INFORMATION
  Report Type: 
  Country: None (occurrence: None)
  Receive Date: 20040617
  Receipt Date: 20040603
  Transmission Date: 20050107
  Serious: Yes (Other)
  Sender: FDA-Public Use
  Company Number: 2004-DE-03178GD

PATIENT

DRUGS (2)
  1. MEXILETINE HCL [Suspect]
     Indication: VENTRICULAR FIBRILLATION
  2. AMIODARONE HCL [Suspect]
     Indication: VENTRICULAR FIBRILLATION

REACTIONS (1)
  - DRUG INEFFECTIVE [None]
